FAERS Safety Report 8369584-5 (Version None)
Quarter: 2012Q1

REPORT INFORMATION
  Report Type: 
  Country: None (occurrence: None)
  Receive Date: 20120323
  Receipt Date: 20110124
  Transmission Date: 20120608
  Serious: Yes (Hospitalization)
  Sender: FDA-Public Use
  Company Number: 163-21880-11012507

PATIENT
  Age: 56 Year
  Sex: Male

DRUGS (3)
  1. REVLIMID [Suspect]
     Indication: MULTIPLE MYELOMA
     Dosage: 15 MG, 1 IN 1 D, PO, 10 MG, 1 IN 1 D, PO, 5 MG, DAILY ON DAYS 1-21 EVERY 28 DAYS, PO
     Route: 048
     Dates: start: 20100701
  2. REVLIMID [Suspect]
     Indication: MULTIPLE MYELOMA
     Dosage: 15 MG, 1 IN 1 D, PO, 10 MG, 1 IN 1 D, PO, 5 MG, DAILY ON DAYS 1-21 EVERY 28 DAYS, PO
     Route: 048
     Dates: start: 20100601
  3. REVLIMID [Suspect]
     Indication: MULTIPLE MYELOMA
     Dosage: 15 MG, 1 IN 1 D, PO, 10 MG, 1 IN 1 D, PO, 5 MG, DAILY ON DAYS 1-21 EVERY 28 DAYS, PO
     Route: 048
     Dates: start: 20101101

REACTIONS (2)
  - INFLUENZA [None]
  - PNEUMONIA [None]
